FAERS Safety Report 11937855 (Version 1)
Quarter: 2016Q1

REPORT INFORMATION
  Report Type: Spontaneous
  Country: US (occurrence: US)
  Receive Date: 20160122
  Receipt Date: 20160122
  Transmission Date: 20160526
  Serious: No
  Sender: FDA-Public Use
  Company Number: US-BRISTOL-MYERS SQUIBB COMPANY-16536062

PATIENT
  Age: 33 Year
  Sex: Female

DRUGS (4)
  1. PROFASI HP [Suspect]
     Active Substance: GONADOTROPHIN, CHORIONIC
     Indication: IN VITRO FERTILISATION
     Dosage: INJ
     Route: 065
  2. FOLLITROPIN ALFA [Suspect]
     Active Substance: FOLLITROPIN
     Indication: IN VITRO FERTILISATION
     Route: 065
  3. MENOTROPHIN [Suspect]
     Active Substance: MENOTROPINS
     Indication: IN VITRO FERTILISATION
     Route: 065
  4. METFORMIN HYDROCHLORIDE. [Suspect]
     Active Substance: METFORMIN HYDROCHLORIDE
     Indication: POLYCYSTIC OVARIES
     Route: 065

REACTIONS (3)
  - Normal newborn [Unknown]
  - In vitro fertilisation [Unknown]
  - Maternal exposure during pregnancy [Recovered/Resolved]
